FAERS Safety Report 5044716-5 (Version None)
Quarter: 2006Q3

REPORT INFORMATION
  Report Type: 
  Country: None (occurrence: None)
  Receive Date: 20060707
  Receipt Date: 20060628
  Transmission Date: 20061208
  Serious: Yes (Hospitalization)
  Sender: FDA-Public Use
  Company Number: FR-JNJFOC-20060504569

PATIENT
  Age: 57 Year
  Sex: Male
  Weight: 80 kg

DRUGS (4)
  1. REMICADE [Suspect]
     Indication: ANKYLOSING SPONDYLITIS
     Route: 042
  2. NEXIUM [Concomitant]
     Indication: ANKYLOSING SPONDYLITIS
     Route: 048
  3. APRANAX [Concomitant]
     Indication: ANKYLOSING SPONDYLITIS
     Route: 048
  4. METHOTREXATE [Concomitant]
     Indication: ANKYLOSING SPONDYLITIS
     Route: 048

REACTIONS (3)
  - PRURITUS [None]
  - PSORIASIS [None]
  - RASH MACULO-PAPULAR [None]
